FAERS Safety Report 18605098 (Version 1)
Quarter: 2020Q4

REPORT INFORMATION
  Report Type: Spontaneous
  Country: US (occurrence: US)
  Receive Date: 20201211
  Receipt Date: 20201211
  Transmission Date: 20210114
  Serious: Yes (Other)
  Sender: FDA-Public Use
  Company Number: None

PATIENT
  Sex: Female
  Weight: 99 kg

DRUGS (3)
  1. ELIQUIS [Suspect]
     Active Substance: APIXABAN
     Indication: PRODUCT SUBSTITUTION
     Dosage: ?          QUANTITY:1 TABLET(S);?
     Dates: start: 20201207, end: 20201210
  2. TYLENOL [Concomitant]
     Active Substance: ACETAMINOPHEN
  3. PAXIL [Concomitant]
     Active Substance: PAROXETINE HYDROCHLORIDE

REACTIONS (6)
  - Dizziness [None]
  - Abdominal pain upper [None]
  - Haemorrhage [None]
  - Transfusion [None]
  - Thrombosis [None]
  - Fatigue [None]
